FAERS Safety Report 9467857 (Version 1)
Quarter: 2013Q3

REPORT INFORMATION
  Report Type: Spontaneous
  Country: US (occurrence: US)
  Receive Date: 20130821
  Receipt Date: 20130821
  Transmission Date: 20140515
  Serious: Yes (Other)
  Sender: FDA-Public Use
  Company Number: US-SANOFI-AVENTIS-2013SA072449

PATIENT
  Sex: Male
  Weight: 58.96 kg

DRUGS (1)
  1. UNISOM [Suspect]
     Indication: INSOMNIA
     Route: 065

REACTIONS (3)
  - Influenza like illness [Recovered/Resolved]
  - Drug dependence [Recovered/Resolved]
  - Wrong technique in drug usage process [Unknown]
